FAERS Safety Report 18410087 (Version 5)
Quarter: 2022Q4

REPORT INFORMATION
  Report Type: Spontaneous
  Country: FR (occurrence: FR)
  Receive Date: 20201021
  Receipt Date: 20221004
  Transmission Date: 20230113
  Serious: Yes (Hospitalization, Other)
  Sender: FDA-Public Use
  Company Number: NVSC2020FR280303

PATIENT
  Age: 53 Year
  Sex: Male
  Weight: 82 kg

DRUGS (33)
  1. METFORMIN HYDROCHLORIDE [Suspect]
     Active Substance: METFORMIN HYDROCHLORIDE
     Indication: Diabetes mellitus
     Dosage: 2 G, QD
     Route: 048
  2. HYDROCHLOROTHIAZIDE\NEBIVOLOL HYDROCHLORIDE [Suspect]
     Active Substance: HYDROCHLOROTHIAZIDE\NEBIVOLOL HYDROCHLORIDE
     Indication: Hypertension
     Dosage: 5 MG, QD
     Route: 048
  3. HYDROCHLOROTHIAZIDE\NEBIVOLOL HYDROCHLORIDE [Suspect]
     Active Substance: HYDROCHLOROTHIAZIDE\NEBIVOLOL HYDROCHLORIDE
     Indication: Hypertension
     Dosage: 5 MG, QD
     Route: 048
  4. KETOCONAZOLE [Interacting]
     Active Substance: KETOCONAZOLE
     Indication: Cushing^s syndrome
     Dosage: 600 MG, QD
     Route: 048
     Dates: start: 20200724, end: 20200814
  5. KETOCONAZOLE [Interacting]
     Active Substance: KETOCONAZOLE
     Dosage: 1000 MG, QD
     Route: 048
     Dates: start: 20200815, end: 20200819
  6. KETOCONAZOLE [Interacting]
     Active Substance: KETOCONAZOLE
     Dosage: 400 MG, QD
     Route: 048
     Dates: start: 20200908, end: 20200914
  7. KETOCONAZOLE [Interacting]
     Active Substance: KETOCONAZOLE
     Dosage: 1000 MG, QD
     Route: 048
     Dates: start: 20200915, end: 20200921
  8. KETOCONAZOLE [Interacting]
     Active Substance: KETOCONAZOLE
     Dosage: 800 MG, QD
     Route: 048
     Dates: start: 20200922, end: 20201014
  9. KETOCONAZOLE [Interacting]
     Active Substance: KETOCONAZOLE
     Dosage: 400 MG, QD
     Route: 048
     Dates: start: 20200910, end: 20200910
  10. KETOCONAZOLE [Interacting]
     Active Substance: KETOCONAZOLE
     Dosage: 600 MG, QD
     Route: 048
     Dates: start: 20200911, end: 20200915
  11. KETOCONAZOLE [Interacting]
     Active Substance: KETOCONAZOLE
     Dosage: 1000 MG, QD
     Route: 048
     Dates: start: 20200916, end: 20200921
  12. KETOCONAZOLE [Interacting]
     Active Substance: KETOCONAZOLE
     Dosage: 200 MG, QD
     Route: 048
     Dates: start: 20200909, end: 20200909
  13. COVERAM [Suspect]
     Active Substance: AMLODIPINE\PERINDOPRIL
     Indication: Hypertension
     Dosage: 8 MG, QD (10/10)
     Route: 048
  14. COVERAM [Suspect]
     Active Substance: AMLODIPINE\PERINDOPRIL
     Indication: Hypertension
  15. ALDACTONE [Suspect]
     Active Substance: SPIRONOLACTONE
     Indication: Hypertension
     Dosage: 100 MG, QD
     Route: 048
  16. FUROSEMIDE [Suspect]
     Active Substance: FUROSEMIDE
     Indication: Cardiac failure
     Dosage: 40 MG, QD
     Route: 048
  17. FUROSEMIDE [Suspect]
     Active Substance: FUROSEMIDE
     Dosage: 40 MG, QD
     Route: 048
  18. POTASSIUM CHLORIDE [Suspect]
     Active Substance: POTASSIUM CHLORIDE
     Indication: Hypokalaemia
     Dosage: UNK
     Route: 048
  19. KARDEGIC [Concomitant]
     Active Substance: ASPIRIN DL-LYSINE
     Indication: Cardiac failure
     Dosage: 75 MG, QD
     Route: 048
  20. TAHOR [Concomitant]
     Active Substance: ATORVASTATIN CALCIUM
     Indication: Dyslipidaemia
     Dosage: 10 MG, QD
     Route: 048
  21. FERROUS SULFATE [Concomitant]
     Active Substance: FERROUS SULFATE
     Indication: Anaemia
     Dosage: UNK
     Route: 065
  22. INSULIN GLARGINE [Concomitant]
     Active Substance: INSULIN GLARGINE
     Indication: Diabetes mellitus
     Dosage: 20 IU, QD
     Route: 058
  23. INSULIN GLARGINE [Concomitant]
     Active Substance: INSULIN GLARGINE
     Indication: Diabetes mellitus
  24. AMLODIPINE BESYLATE [Concomitant]
     Active Substance: AMLODIPINE BESYLATE
     Indication: Hypertension
     Dosage: 5 MG, QD
     Route: 048
  25. NOVORAPID [Concomitant]
     Active Substance: INSULIN ASPART
     Indication: Diabetes mellitus
     Dosage: UNK
     Route: 065
  26. CHOLECALCIFEROL [Concomitant]
     Active Substance: CHOLECALCIFEROL
     Indication: Vitamin D deficiency
     Dosage: UNK
     Route: 065
  27. OSILODROSTAT [Concomitant]
     Active Substance: OSILODROSTAT
     Indication: Cushing^s syndrome
     Dosage: 30 MG, QD
     Route: 048
     Dates: start: 20200903
  28. JANUVIA [Concomitant]
     Active Substance: SITAGLIPTIN PHOSPHATE
     Indication: Diabetes mellitus
     Dosage: 100 MG, QD
     Route: 048
  29. RILMENIDINE PHOSPHATE [Concomitant]
     Active Substance: RILMENIDINE PHOSPHATE
     Indication: Hypertension
     Dosage: 1 MG, QD
     Route: 048
  30. PANTOPRAZOLE [Concomitant]
     Active Substance: PANTOPRAZOLE
     Indication: Prophylaxis
     Dosage: 40 MG, QD
     Route: 048
  31. OSUTIDINE [Concomitant]
     Indication: Cushing^s syndrome
     Dosage: 30 MG, QD
     Route: 048
     Dates: start: 20200903
  32. PERINDOPRIL [Concomitant]
     Active Substance: PERINDOPRIL
     Indication: Hypertension
     Dosage: 8 MG, QD
     Route: 048
  33. PERINDOPRIL ARGININE [Concomitant]
     Active Substance: PERINDOPRIL ARGININE
     Indication: Hypertension
     Dosage: 8 MG, QD
     Route: 048

REACTIONS (6)
  - Acute kidney injury [Recovered/Resolved]
  - Hypokalaemia [Recovered/Resolved]
  - Hyperkalaemia [Recovered/Resolved]
  - Labelled drug-drug interaction medication error [Unknown]
  - Drug interaction [Unknown]
  - Drug ineffective [Recovered/Resolved]

NARRATIVE: CASE EVENT DATE: 20200724
